FAERS Safety Report 11948227 (Version 1)
Quarter: 2016Q1

REPORT INFORMATION
  Report Type: Spontaneous
  Country: US (occurrence: US)
  Receive Date: 20160125
  Receipt Date: 20160125
  Transmission Date: 20160526
  Serious: No
  Sender: FDA-Public Use
  Company Number: US-TARO-2015TAR01075

PATIENT
  Age: 59 Year
  Sex: Female
  Weight: 63.5 kg

DRUGS (3)
  1. DESOXIMETASONE SPRAY USP 0.25% [Suspect]
     Active Substance: DESOXIMETASONE
     Dosage: TOPICALLY ON THE BACK OF HER SKULL WHERE THE HAIRLINE STARTS, 2X/DAY
     Route: 061
     Dates: start: 20151115, end: 201511
  2. DESOXIMETASONE SPRAY USP 0.25% [Suspect]
     Active Substance: DESOXIMETASONE
     Indication: DERMATITIS
     Dosage: UNKNOWN AMOUNT IN THE EYE, ONCE
     Route: 047
     Dates: start: 20151117, end: 20151117
  3. UNSPECIFIED REGULAR VITAMINS [Concomitant]
     Active Substance: VITAMINS

REACTIONS (4)
  - Off label use [Recovered/Resolved]
  - Exposure via direct contact [Recovered/Resolved]
  - Eye irritation [Recovered/Resolved]
  - Ocular hyperaemia [Recovered/Resolved]

NARRATIVE: CASE EVENT DATE: 20151117
